FAERS Safety Report 4335902-8 (Version None)
Quarter: 2004Q2

REPORT INFORMATION
  Report Type: 
  Country: None (occurrence: None)
  Receive Date: 20040406
  Receipt Date: 20040329
  Transmission Date: 20050107
  Serious: Yes (Hospitalization)
  Sender: FDA-Public Use
  Company Number: 2004AC00051

PATIENT
  Age: 1 Month
  Sex: Male

DRUGS (1)
  1. LIDOCAINE 1% [Suspect]
     Indication: ANAESTHESIA
     Dosage: 3ML PNEU

REACTIONS (6)
  - COMA [None]
  - CONVULSION [None]
  - DRUG TOXICITY [None]
  - HYPERTONIA [None]
  - OVERDOSE [None]
  - PENILE HAEMORRHAGE [None]
